FAERS Safety Report 4848718-0 (Version None)
Quarter: 2005Q4

REPORT INFORMATION
  Report Type: 
  Country: None (occurrence: None)
  Receive Date: 20051206
  Receipt Date: 20051117
  Transmission Date: 20060501
  Serious: Yes (Hospitalization)
  Sender: FDA-Public Use
  Company Number: EWC050142073

PATIENT
  Age: 56 Year
  Sex: Female

DRUGS (1)
  1. OLANZAPINE (OLANZAPINE) TABLET, DISPERSIBLE [Suspect]
     Indication: SCHIZOPHRENIA
     Dosage: 10 MG, DAILY (1/D), SUBLINGUAL
     Route: 060
     Dates: start: 20040820, end: 20041217

REACTIONS (5)
  - BLOOD OSMOLARITY INCREASED [None]
  - DIABETES MELLITUS NON-INSULIN-DEPENDENT [None]
  - DYSLIPIDAEMIA [None]
  - HEPATIC STEATOSIS [None]
  - HEPATOMEGALY [None]
